FAERS Safety Report 7177828-0 (Version None)
Quarter: 2010Q4

REPORT INFORMATION
  Report Type: 
  Country: None (occurrence: None)
  Receive Date: 20101208
  Receipt Date: 20101123
  Transmission Date: 20110411
  Serious: Yes (Other)
  Sender: FDA-Public Use
  Company Number: AUR-APL-2010-02951

PATIENT
  Age: 3 Day
  Sex: Male

DRUGS (1)
  1. ZIDOVUDINE [Suspect]
     Indication: HIV TEST POSITIVE
     Dosage: 120MG, IN 24 H, ORAL
     Route: 048

REACTIONS (4)
  - BLOOD LACTIC ACID INCREASED [None]
  - MATERNAL DRUGS AFFECTING FOETUS [None]
  - OVERDOSE [None]
  - SINUS BRADYCARDIA [None]
